FAERS Safety Report 12524689 (Version 1)
Quarter: 2016Q3

REPORT INFORMATION
  Report Type: Report from Study
  Country: CA (occurrence: CA)
  Receive Date: 20160704
  Receipt Date: 20160704
  Transmission Date: 20161109
  Serious: Yes (Other)
  Sender: FDA-Public Use
  Company Number: CA-JNJFOC-20160625447

PATIENT
  Sex: Male
  Weight: 103.6 kg

DRUGS (2)
  1. REMICADE [Suspect]
     Active Substance: INFLIXIMAB
     Indication: CROHN^S DISEASE
     Route: 042
  2. REMICADE [Suspect]
     Active Substance: INFLIXIMAB
     Indication: CROHN^S DISEASE
     Dosage: 5 INFUSIONS
     Route: 042

REACTIONS (4)
  - Abdominal pain [Unknown]
  - Anal fistula [Unknown]
  - Abscess [Unknown]
  - Diarrhoea [Unknown]
